FAERS Safety Report 6882735-4 (Version None)
Quarter: 2010Q3

REPORT INFORMATION
  Report Type: 
  Country: None (occurrence: None)
  Receive Date: 20100729
  Receipt Date: 20100628
  Transmission Date: 20110219
  Serious: No
  Sender: FDA-Public Use
  Company Number: US-BAYER-201017636BCC

PATIENT
  Age: 70 Year
  Sex: Male
  Weight: 67 kg

DRUGS (9)
  1. ALEVE [Suspect]
     Indication: ARTHRALGIA
     Dosage: AS USED: 220 MG  UNIT DOSE: 220 MG
     Route: 048
  2. ENBREL [Concomitant]
  3. REMICADE [Concomitant]
  4. ATENOL [Concomitant]
  5. SOCORE [Concomitant]
  6. DARVOCET [Concomitant]
  7. LISINOPRIL [Concomitant]
  8. ASPIRIN [Concomitant]
  9. PREDNISONE [Concomitant]

REACTIONS (1)
  - ARTHRALGIA [None]
